FAERS Safety Report 20631161 (Version 1)
Quarter: 2022Q1

REPORT INFORMATION
  Report Type: Spontaneous
  Country: US (occurrence: US)
  Receive Date: 20220324
  Receipt Date: 20220324
  Transmission Date: 20220423
  Serious: No
  Sender: FDA-Public Use
  Company Number: US-AUROBINDO-AUR-APL-2021-043254

PATIENT
  Age: 97 Year
  Sex: Female
  Weight: 79.365 kg

DRUGS (6)
  1. CELECOXIB [Suspect]
     Active Substance: CELECOXIB
     Indication: Pain
     Dosage: 200 MILLIGRAM, ONCE A DAY
     Route: 065
     Dates: start: 20211013
  2. CELECOXIB [Suspect]
     Active Substance: CELECOXIB
     Dosage: UNK
     Route: 065
     Dates: start: 20211022
  3. CELECOXIB [Suspect]
     Active Substance: CELECOXIB
     Dosage: UNK
     Route: 065
     Dates: start: 20211024
  4. CELECOXIB [Suspect]
     Active Substance: CELECOXIB
     Dosage: UNK
     Route: 065
     Dates: start: 20211025
  5. CELECOXIB [Suspect]
     Active Substance: CELECOXIB
     Dosage: UNK
     Route: 065
     Dates: start: 20211026
  6. TYLENOL [Concomitant]
     Active Substance: ACETAMINOPHEN
     Indication: Product used for unknown indication
     Dosage: UNK
     Route: 065

REACTIONS (1)
  - Drug ineffective [Unknown]
